FAERS Safety Report 4885771-2 (Version None)
Quarter: 2006Q1

REPORT INFORMATION
  Report Type: 
  Country: None (occurrence: None)
  Receive Date: 20060117
  Receipt Date: 20060104
  Transmission Date: 20060701
  Serious: Yes (Hospitalization)
  Sender: FDA-Public Use
  Company Number: 2006003394

PATIENT
  Age: 46 Year
  Sex: Male

DRUGS (6)
  1. ATORVASTATIN CALCIUM [Suspect]
     Indication: BLOOD CHOLESTEROL
     Dosage: 10 MG (10 MG 1 IN 1D) ORAL
     Route: 048
     Dates: end: 20051201
  2. HALOPERIDOL [Concomitant]
  3. SEROQUEL [Concomitant]
  4. TRIHEXYPHENIDYL HCL [Concomitant]
  5. CLONAZEPAM [Concomitant]
  6. ALLOPURINOL [Concomitant]

REACTIONS (4)
  - BONE PAIN [None]
  - MUSCLE ATROPHY [None]
  - MUSCULAR WEAKNESS [None]
  - PAIN [None]
